FAERS Safety Report 22021876 (Version 2)
Quarter: 2023Q1

REPORT INFORMATION
  Report Type: Spontaneous
  Country: US (occurrence: None)
  Receive Date: 20230222
  Receipt Date: 20230316
  Transmission Date: 20230418
  Serious: No
  Sender: FDA-Public Use
  Company Number: 2023A042244

PATIENT
  Sex: Male

DRUGS (1)
  1. CRESTOR [Suspect]
     Active Substance: ROSUVASTATIN CALCIUM
     Route: 048
     Dates: start: 2010, end: 2022

REACTIONS (15)
  - Neuroma [Recovering/Resolving]
  - Gait disturbance [Recovering/Resolving]
  - Intervertebral disc protrusion [Recovering/Resolving]
  - Spinal stenosis [Recovering/Resolving]
  - Limb discomfort [Recovering/Resolving]
  - Walking disability [Recovering/Resolving]
  - Intervertebral disc protrusion [Recovering/Resolving]
  - Swelling [Recovering/Resolving]
  - Sensory loss [Recovering/Resolving]
  - Peripheral swelling [Recovering/Resolving]
  - Musculoskeletal discomfort [Recovering/Resolving]
  - Myopathy [Recovering/Resolving]
  - Asthenia [Recovering/Resolving]
  - Anxiety [Unknown]
  - Arthralgia [Unknown]
